FAERS Safety Report 8058078-2 (Version None)
Quarter: 2012Q1

REPORT INFORMATION
  Report Type: 
  Country: None (occurrence: None)
  Receive Date: 20120113
  Receipt Date: 20120104
  Transmission Date: 20120608
  Serious: Yes (Other)
  Sender: FDA-Public Use
  Company Number: 2012AP000015

PATIENT
  Age: 82 Year
  Sex: Male

DRUGS (7)
  1. FERROUS SULFATE TAB [Concomitant]
  2. AMLODIPINE [Concomitant]
  3. ATORVASTATIN [Concomitant]
  4. RAMIPRIL (RAMIPRIL) 1.25 MG, PO [Suspect]
     Indication: MICROALBUMINURIA
     Dosage: 1.25 MG, PO
     Route: 048
     Dates: start: 20111116, end: 20111207
  5. RAMIPRIL (RAMIPRIL) 1.25 MG, PO [Suspect]
     Indication: HYPERTENSION
     Dosage: 1.25 MG, PO
     Route: 048
     Dates: start: 20111116, end: 20111207
  6. LANSOPRAZOLE [Concomitant]
  7. ATENOLOL [Concomitant]

REACTIONS (2)
  - VASCULITIC RASH [None]
  - SKIN NECROSIS [None]
